FAERS Safety Report 16020992 (Version 1)
Quarter: 2019Q2

REPORT INFORMATION
  Report Type: Spontaneous
  Country: US (occurrence: US)
  Receive Date: 20190228
  Receipt Date: 20190228
  Transmission Date: 20190711
  Serious: Yes (Hospitalization)
  Sender: FDA-Public Use
  Company Number: None

PATIENT
  Sex: Male

DRUGS (7)
  1. CELEBREX [Concomitant]
     Active Substance: CELECOXIB
  2. STELARA [Suspect]
     Active Substance: USTEKINUMAB
     Indication: PSORIATIC ARTHROPATHY
     Dosage: ?          OTHER FREQUENCY:EVERY 12 WEEKS;?
     Route: 058
     Dates: start: 20180314
  3. DICLOFENAC [Concomitant]
     Active Substance: DICLOFENAC
  4. OXYCODONE [Concomitant]
     Active Substance: OXYCODONE
  5. PREDNISONE. [Concomitant]
     Active Substance: PREDNISONE
  6. IMURAN [Concomitant]
     Active Substance: AZATHIOPRINE
  7. LEFLUNOMIDE. [Concomitant]
     Active Substance: LEFLUNOMIDE

REACTIONS (2)
  - Therapy cessation [None]
  - Surgery [None]
